FAERS Safety Report 10098682 (Version 3)
Quarter: 2015Q1

REPORT INFORMATION
  Report Type: Spontaneous
  Country: US (occurrence: US)
  Receive Date: 20140423
  Receipt Date: 20150217
  Transmission Date: 20150720
  Serious: Yes (Hospitalization, Other)
  Sender: FDA-Public Use
  Company Number: US-BAYER-2014-057922

PATIENT
  Age: 54 Year
  Sex: Female
  Weight: 75.74 kg

DRUGS (3)
  1. YAZ [Suspect]
     Active Substance: DROSPIRENONE\ETHINYL ESTRADIOL
     Indication: ACNE
     Dosage: UNK
     Route: 048
     Dates: start: 2011, end: 2014
  2. YAZ [Suspect]
     Active Substance: DROSPIRENONE\ETHINYL ESTRADIOL
     Indication: PREMENSTRUAL SYNDROME
  3. YAZ [Suspect]
     Active Substance: DROSPIRENONE\ETHINYL ESTRADIOL
     Indication: PREMENSTRUAL DYSPHORIC DISORDER

REACTIONS (6)
  - Thrombosis [None]
  - Cerebrovascular accident [None]
  - Pain [None]
  - Injury [None]
  - Pulmonary embolism [None]
  - Deep vein thrombosis [None]
